FAERS Safety Report 20695230 (Version 6)
Quarter: 2024Q2

REPORT INFORMATION
  Report Type: Report from Study
  Country: US (occurrence: US)
  Receive Date: 20220411
  Receipt Date: 20240402
  Transmission Date: 20240716
  Serious: Yes (Hospitalization)
  Sender: FDA-Public Use
  Company Number: US-TAKEDA-2022TUS022564

PATIENT
  Sex: Female

DRUGS (2)
  1. MARIBAVIR [Suspect]
     Active Substance: MARIBAVIR
     Indication: Cytomegalovirus infection
     Dosage: 400 MILLIGRAM, BID
     Route: 048
     Dates: start: 20220228, end: 20220621
  2. MARIBAVIR [Suspect]
     Active Substance: MARIBAVIR
     Dosage: 400 MILLIGRAM, BID
     Route: 048
     Dates: start: 20220326

REACTIONS (6)
  - Pyrexia [Unknown]
  - Drug ineffective [Not Recovered/Not Resolved]
  - Product taste abnormal [Unknown]
  - Fatigue [Unknown]
  - Taste disorder [Unknown]
  - Nausea [Unknown]

NARRATIVE: CASE EVENT DATE: 20220101
